FAERS Safety Report 9062865 (Version 1)
Quarter: 2013Q1

REPORT INFORMATION
  Report Type: Spontaneous
  Country: US (occurrence: US)
  Receive Date: 20130213
  Receipt Date: 20130213
  Transmission Date: 20140127
  Serious: Yes (Hospitalization)
  Sender: FDA-Public Use
  Company Number: US-PURDUE-USA-2013-0098768

PATIENT
  Sex: Male

DRUGS (2)
  1. BUTRANS [Suspect]
     Indication: BACK PAIN
     Dosage: 20 MCG, Q1H
     Route: 062
     Dates: start: 2012
  2. BUTRANS [Suspect]
     Indication: SPINAL OSTEOARTHRITIS

REACTIONS (8)
  - Gastroenteritis salmonella [Recovered/Resolved]
  - Vomiting [Recovered/Resolved]
  - Diarrhoea [Recovered/Resolved]
  - Dehydration [Recovered/Resolved]
  - Drug withdrawal syndrome [Unknown]
  - Increased appetite [Unknown]
  - Vision blurred [Not Recovered/Not Resolved]
  - Decreased appetite [Unknown]
